FAERS Safety Report 18843138 (Version 1)
Quarter: 2021Q1

REPORT INFORMATION
  Report Type: Spontaneous
  Country: US (occurrence: US)
  Receive Date: 20210203
  Receipt Date: 20210203
  Transmission Date: 20210419
  Serious: No
  Sender: FDA-Public Use
  Company Number: US-CELGENEUS-USA-20210106191

PATIENT
  Sex: Male

DRUGS (5)
  1. INREBIC [Suspect]
     Active Substance: FEDRATINIB HYDROCHLORIDE
     Indication: MYELOFIBROSIS
     Dosage: 200 MILLIGRAM
     Route: 048
  2. TAMSULOSIN [Concomitant]
     Active Substance: TAMSULOSIN
     Indication: PRODUCT USED FOR UNKNOWN INDICATION
     Route: 048
  3. INREBIC [Suspect]
     Active Substance: FEDRATINIB HYDROCHLORIDE
     Dosage: 300 MILLIGRAM
     Route: 048
  4. MULTIVITAMIN [Concomitant]
     Active Substance: VITAMINS
     Indication: PRODUCT USED FOR UNKNOWN INDICATION
     Route: 048
  5. INREBIC [Suspect]
     Active Substance: FEDRATINIB HYDROCHLORIDE
     Dosage: 400 MILLIGRAM
     Route: 048

REACTIONS (3)
  - Dry skin [Not Recovered/Not Resolved]
  - Fatigue [Not Recovered/Not Resolved]
  - Skin exfoliation [Not Recovered/Not Resolved]
